FAERS Safety Report 5521963-7 (Version None)
Quarter: 2007Q4

REPORT INFORMATION
  Report Type: 
  Country: None (occurrence: None)
  Receive Date: 20071120
  Receipt Date: 20070530
  Transmission Date: 20080405
  Serious: Yes (Hospitalization)
  Sender: FDA-Public Use
  Company Number: US-BRISTOL-MYERS SQUIBB COMPANY-13798020

PATIENT
  Sex: Male

DRUGS (1)
  1. AVALIDE [Suspect]
     Route: 048

REACTIONS (1)
  - ANGIOEDEMA [None]
